FAERS Safety Report 25303932 (Version 1)
Quarter: 2025Q2

REPORT INFORMATION
  Report Type: Spontaneous
  Country: US (occurrence: US)
  Receive Date: 20250513
  Receipt Date: 20250513
  Transmission Date: 20250717
  Serious: Yes (Other)
  Sender: ROCHE
  Company Number: US-ROCHE-10000279476

PATIENT
  Sex: Female

DRUGS (6)
  1. ACTEMRA [Suspect]
     Active Substance: TOCILIZUMAB
     Indication: Rheumatoid arthritis
     Dosage: 162 MG/O.9ML
     Route: 058
     Dates: start: 20250408
  2. ASPIRIN LOW TAB 81 MG EC [Concomitant]
  3. LEUCOVOR CA TAB 5 MG [Concomitant]
  4. MAGNESIUM TAB 250 MG [Concomitant]
  5. TORSEMIDE TAB 10 MG [Concomitant]
  6. VITAMIN D3 [Concomitant]
     Active Substance: CHOLECALCIFEROL

REACTIONS (2)
  - Neoplasm malignant [Unknown]
  - Wound [Unknown]
